FAERS Safety Report 12779190 (Version 1)
Quarter: 2016Q3

REPORT INFORMATION
  Report Type: Spontaneous
  Country: US (occurrence: US)
  Receive Date: 20160926
  Receipt Date: 20160926
  Transmission Date: 20161109
  Serious: No
  Sender: FDA-Public Use
  Company Number: US-JAZZ-2016-US-011158

PATIENT
  Sex: Female

DRUGS (36)
  1. PROPRANOLOL [Concomitant]
     Active Substance: PROPRANOLOL\PROPRANOLOL HYDROCHLORIDE
  2. BACLOFEN. [Concomitant]
     Active Substance: BACLOFEN
  3. LINZESS [Concomitant]
     Active Substance: LINACLOTIDE
  4. XYREM [Suspect]
     Active Substance: SODIUM OXYBATE
     Indication: NARCOLEPSY
     Dosage: 2.25 G, BID
     Route: 048
     Dates: start: 201301, end: 201302
  5. CHANTIX [Concomitant]
     Active Substance: VARENICLINE TARTRATE
  6. ONDANSETRON [Concomitant]
     Active Substance: ONDANSETRON
  7. TRILEPTAL [Concomitant]
     Active Substance: OXCARBAZEPINE
  8. MIRAPEX [Concomitant]
     Active Substance: PRAMIPEXOLE DIHYDROCHLORIDE
  9. IMITREX [Concomitant]
     Active Substance: SUMATRIPTAN SUCCINATE
  10. CELEXA [Concomitant]
     Active Substance: CITALOPRAM HYDROBROMIDE
  11. LATUDA [Concomitant]
     Active Substance: LURASIDONE HYDROCHLORIDE
  12. AMITRIPTYLINE HCL [Concomitant]
     Active Substance: AMITRIPTYLINE
  13. FLUDROCORTISONE [Concomitant]
     Active Substance: FLUDROCORTISONE
  14. MIDODRINE HCL [Concomitant]
     Active Substance: MIDODRINE HYDROCHLORIDE
  15. TIZANIDINE. [Concomitant]
     Active Substance: TIZANIDINE
  16. XYREM [Suspect]
     Active Substance: SODIUM OXYBATE
     Dosage: DOSE ADJUSTMENTS
     Route: 048
     Dates: start: 201302, end: 201401
  17. VITAMIN D [Concomitant]
     Active Substance: CHOLECALCIFEROL
  18. TOPAMAX [Concomitant]
     Active Substance: TOPIRAMATE
  19. SAPHRIS [Concomitant]
     Active Substance: ASENAPINE MALEATE
  20. LYRICA [Concomitant]
     Active Substance: PREGABALIN
  21. REGLAN [Concomitant]
     Active Substance: METOCLOPRAMIDE HYDROCHLORIDE
  22. XYREM [Suspect]
     Active Substance: SODIUM OXYBATE
     Dosage: 2.5 G, BID
     Route: 048
     Dates: start: 201401, end: 2014
  23. MAXALT [Concomitant]
     Active Substance: RIZATRIPTAN BENZOATE
  24. GABAPENTIN. [Concomitant]
     Active Substance: GABAPENTIN
  25. OXCARBAZEPINE. [Concomitant]
     Active Substance: OXCARBAZEPINE
  26. PROVIGIL [Concomitant]
     Active Substance: MODAFINIL
  27. BOTOX [Concomitant]
     Active Substance: ONABOTULINUMTOXINA
  28. MULTIVITAMIN [Concomitant]
     Active Substance: VITAMINS
  29. BENADRYL ALLERGY [Concomitant]
     Active Substance: DIPHENHYDRAMINE HYDROCHLORIDE
  30. MORPHINE SULF [Concomitant]
     Active Substance: MORPHINE SULFATE
  31. XYREM [Suspect]
     Active Substance: SODIUM OXYBATE
     Dosage: 2.25 G, BID
     Route: 048
     Dates: start: 201412, end: 201510
  32. XYREM [Suspect]
     Active Substance: SODIUM OXYBATE
     Dosage: 3 G, BID
     Route: 048
     Dates: start: 201510
  33. LAMICTAL [Concomitant]
     Active Substance: LAMOTRIGINE
  34. LORAZEPAM. [Concomitant]
     Active Substance: LORAZEPAM
  35. CLONAZEPAM. [Concomitant]
     Active Substance: CLONAZEPAM
  36. PIROXICAM. [Concomitant]
     Active Substance: PIROXICAM

REACTIONS (2)
  - Tobacco user [Not Recovered/Not Resolved]
  - Allergy to animal [Not Recovered/Not Resolved]

NARRATIVE: CASE EVENT DATE: 2014
